FAERS Safety Report 19123850 (Version 1)
Quarter: 2021Q2

REPORT INFORMATION
  Report Type: Spontaneous
  Country: US (occurrence: US)
  Receive Date: 20210413
  Receipt Date: 20210413
  Transmission Date: 20210717
  Serious: No
  Sender: FDA-Public Use
  Company Number: US-SUN PHARMACEUTICAL INDUSTRIES LTD-2021R1-286171

PATIENT
  Age: 53 Year
  Sex: Male

DRUGS (2)
  1. TADALAFIL. [Suspect]
     Active Substance: TADALAFIL
     Indication: ERECTILE DYSFUNCTION
     Dosage: UNK (SPLIT THE 5MG TABLET IN HALF)
     Route: 048
     Dates: start: 202103
  2. TADALAFIL. [Suspect]
     Active Substance: TADALAFIL
     Dosage: ANOTHER DOSE
     Route: 048
     Dates: start: 20210306

REACTIONS (2)
  - Restlessness [Not Recovered/Not Resolved]
  - Anxiety [Not Recovered/Not Resolved]

NARRATIVE: CASE EVENT DATE: 202103
